FAERS Safety Report 14435757 (Version 1)
Quarter: 2018Q1

REPORT INFORMATION
  Report Type: Report from Study
  Country: CA (occurrence: CA)
  Receive Date: 20180125
  Receipt Date: 20180125
  Transmission Date: 20180509
  Serious: Yes (Other)
  Sender: FDA-Public Use
  Company Number: CA-AMGEN-KDL361824

PATIENT
  Age: 47 Year
  Sex: Female
  Weight: 104.31 kg

DRUGS (5)
  1. METHOTREXATE. [Concomitant]
     Active Substance: METHOTREXATE
     Indication: RHEUMATOID ARTHRITIS
     Dosage: 10 TABLETS, QWK
     Route: 048
  2. ARAVA [Concomitant]
     Active Substance: LEFLUNOMIDE
     Dosage: UNK
  3. ENBREL [Suspect]
     Active Substance: ETANERCEPT
     Indication: RHEUMATOID ARTHRITIS
     Dosage: UNK UNK, QWK
     Route: 065
     Dates: start: 20090826, end: 2009
  4. PREDNISONE. [Concomitant]
     Active Substance: PREDNISONE
     Dosage: UNK
  5. ENBREL [Suspect]
     Active Substance: ETANERCEPT
     Dosage: UNK
     Route: 065

REACTIONS (24)
  - Dysmenorrhoea [Unknown]
  - Dizziness [Unknown]
  - Injection site pain [Recovered/Resolved]
  - Injection site erythema [Recovering/Resolving]
  - Immunodeficiency [Unknown]
  - Rheumatoid arthritis [Unknown]
  - Chills [Recovered/Resolved]
  - Hyperhidrosis [Recovered/Resolved]
  - Fibromyalgia [Unknown]
  - Walking aid user [Unknown]
  - Injection site discolouration [Recovering/Resolving]
  - Injection site reaction [Unknown]
  - Feeling abnormal [Unknown]
  - Pelvic pain [Unknown]
  - Abdominal pain upper [Unknown]
  - Nausea [Not Recovered/Not Resolved]
  - Fear of injection [Unknown]
  - Crying [Recovered/Resolved]
  - Adverse drug reaction [Unknown]
  - Arthralgia [Unknown]
  - Injection site swelling [Recovering/Resolving]
  - Drug ineffective [Unknown]
  - Tremor [Recovered/Resolved]
  - Weight decreased [Unknown]

NARRATIVE: CASE EVENT DATE: 20090826
